FAERS Safety Report 11652001 (Version 1)
Quarter: 2015Q4

REPORT INFORMATION
  Report Type: Spontaneous
  Country: US (occurrence: US)
  Receive Date: 20151022
  Receipt Date: 20151022
  Transmission Date: 20160304
  Serious: No
  Sender: FDA-Public Use
  Company Number: US-BIOGENIDEC-2015BI141640

PATIENT
  Sex: Female

DRUGS (1)
  1. TYSABRI [Suspect]
     Active Substance: NATALIZUMAB
     Indication: MULTIPLE SCLEROSIS

REACTIONS (5)
  - CD4/CD8 ratio decreased [Unknown]
  - Secondary progressive multiple sclerosis [Unknown]
  - Disease progression [Unknown]
  - Infection [Unknown]
  - Abasia [Unknown]
